FAERS Safety Report 21540180 (Version 1)
Quarter: 2022Q4

REPORT INFORMATION
  Report Type: Spontaneous
  Country: BR (occurrence: None)
  Receive Date: 20221102
  Receipt Date: 20221102
  Transmission Date: 20230112
  Serious: Yes (Other)
  Sender: FDA-Public Use
  Company Number: BR-ROCHE-3207038

PATIENT
  Age: 58 Year
  Sex: Male
  Weight: 96.7 kg

DRUGS (3)
  1. ATEZOLIZUMAB [Suspect]
     Active Substance: ATEZOLIZUMAB
     Indication: Hepatocellular carcinoma
     Route: 065
     Dates: start: 20211025
  2. BEVACIZUMAB [Suspect]
     Active Substance: BEVACIZUMAB
     Indication: Hepatocellular carcinoma
     Route: 065
     Dates: start: 20211025
  3. ZOLEDRONIC ACID [Concomitant]
     Active Substance: ZOLEDRONIC ACID
     Indication: Hepatocellular carcinoma
     Route: 065
     Dates: start: 20211025

REACTIONS (12)
  - Hepatocellular carcinoma [Unknown]
  - Diarrhoea [Unknown]
  - Pain [Unknown]
  - Anal haemorrhage [Unknown]
  - Dry mouth [Unknown]
  - Dysgeusia [Unknown]
  - Muscular weakness [Unknown]
  - Hypertension [Unknown]
  - Myalgia [Unknown]
  - Mucosal inflammation [Unknown]
  - Nausea [Unknown]
  - Neuropathy peripheral [Unknown]

NARRATIVE: CASE EVENT DATE: 20220324
